FAERS Safety Report 14577748 (Version 1)
Quarter: 2018Q1

REPORT INFORMATION
  Report Type: Spontaneous
  Country: US (occurrence: US)
  Receive Date: 20180226
  Receipt Date: 20180226
  Transmission Date: 20180509
  Serious: Yes (Life-Threatening)
  Sender: FDA-Public Use
  Company Number: None

PATIENT
  Age: 56 Year
  Sex: Male
  Weight: 74.25 kg

DRUGS (5)
  1. CLOPIDOGREL [Concomitant]
     Active Substance: CLOPIDOGREL BISULFATE
  2. GABAPENTIN. [Concomitant]
     Active Substance: GABAPENTIN
  3. FLOW MAX [Concomitant]
  4. ASPIRIN. [Concomitant]
     Active Substance: ASPIRIN
  5. SIMVASTATIN. [Suspect]
     Active Substance: SIMVASTATIN
     Indication: THROMBOSIS PROPHYLAXIS
     Dosage: ?          QUANTITY:30 TABLET(S);?
     Route: 048
     Dates: start: 20171214, end: 20180115

REACTIONS (7)
  - Headache [None]
  - Myalgia [None]
  - Arthralgia [None]
  - Drug dispensing error [None]
  - Product use issue [None]
  - Product label on wrong product [None]
  - Wrong drug administered [None]

NARRATIVE: CASE EVENT DATE: 20171214
